FAERS Safety Report 18648288 (Version 1)
Quarter: 2020Q4

REPORT INFORMATION
  Report Type: Spontaneous
  Country: US (occurrence: US)
  Receive Date: 20201222
  Receipt Date: 20201222
  Transmission Date: 20210114
  Serious: Yes (Other)
  Sender: FDA-Public Use
  Company Number: US-SUN PHARMACEUTICAL INDUSTRIES LTD-2020R1-272317

PATIENT
  Age: 46 Year
  Sex: Female

DRUGS (1)
  1. SPIRONOLACTONE. [Suspect]
     Active Substance: SPIRONOLACTONE
     Indication: ACNE
     Dosage: 100 MILLIGRAM, QD
     Route: 065

REACTIONS (4)
  - Dyspareunia [Recovered/Resolved]
  - Vulvovaginal pain [Recovered/Resolved]
  - Off label use [Unknown]
  - Female sexual arousal disorder [Recovered/Resolved]
